FAERS Safety Report 10573122 (Version 2)
Quarter: 2014Q4

REPORT INFORMATION
  Report Type: Spontaneous
  Country: IT (occurrence: None)
  Receive Date: 20141106
  Receipt Date: 20141212
  Transmission Date: 20150529
  Serious: Yes (Life-Threatening)
  Sender: FDA-Public Use
  Company Number: 2602756

PATIENT
  Age: 49 Year
  Sex: Male
  Weight: 81 kg

DRUGS (1)
  1. ROCURONIUM BROMIDE. [Suspect]
     Active Substance: ROCURONIUM BROMIDE
     Indication: MUSCLE RELAXANT THERAPY
     Dosage: 50 MG MILLIGRAM(S), TOTAL, INTRAVENOUS BOLUS
     Route: 040
     Dates: start: 20141021, end: 20141021

REACTIONS (2)
  - Hypotension [None]
  - Erythema [None]

NARRATIVE: CASE EVENT DATE: 20141021
